FAERS Safety Report 11475771 (Version 3)
Quarter: 2016Q1

REPORT INFORMATION
  Report Type: Report from Study
  Country: US (occurrence: US)
  Receive Date: 20150909
  Receipt Date: 20160321
  Transmission Date: 20160525
  Serious: No
  Sender: FDA-Public Use
  Company Number: PHEH2015US016600

PATIENT
  Age: 25 Year
  Sex: Female
  Weight: 129.25 kg

DRUGS (1)
  1. GILENYA [Suspect]
     Active Substance: FINGOLIMOD HYDROCHLORIDE
     Indication: MULTIPLE SCLEROSIS
     Dosage: 0.5 MG, QD
     Route: 048
     Dates: start: 20150823

REACTIONS (8)
  - Multiple sclerosis relapse [Unknown]
  - Muscular weakness [Unknown]
  - Balance disorder [Unknown]
  - Diarrhoea [Unknown]
  - Somnolence [Unknown]
  - Abdominal pain upper [Unknown]
  - Tremor [Unknown]
  - Headache [Unknown]

NARRATIVE: CASE EVENT DATE: 20150823
